FAERS Safety Report 5564247-3 (Version None)
Quarter: 2007Q4

REPORT INFORMATION
  Report Type: 
  Country: None (occurrence: None)
  Receive Date: 20071217
  Receipt Date: 20071211
  Transmission Date: 20080405
  Serious: Yes (Hospitalization)
  Sender: FDA-Public Use
  Company Number: US-GILEAD-2007-0014589

PATIENT
  Sex: Female
  Weight: 56.16 kg

DRUGS (8)
  1. LETAIRIS [Suspect]
     Indication: PULMONARY HYPERTENSION
     Route: 048
  2. FLOLAN [Concomitant]
     Route: 042
  3. HEPARIN [Concomitant]
     Route: 042
  4. SODIUM CHLORIDE [Concomitant]
     Route: 042
  5. LASIX [Concomitant]
     Route: 048
  6. VIAGRA [Concomitant]
     Route: 048
  7. LOVENOX [Concomitant]
     Route: 048
  8. DIGITEK [Concomitant]
     Route: 048

REACTIONS (1)
  - NAUSEA [None]
